FAERS Safety Report 22242582 (Version 1)
Quarter: 2023Q2

REPORT INFORMATION
  Report Type: Spontaneous
  Country: US (occurrence: None)
  Receive Date: 20230420
  Receipt Date: 20230420
  Transmission Date: 20230722
  Serious: No
  Sender: FDA-Public Use
  Company Number: None

PATIENT
  Age: 64 Year
  Sex: Male

DRUGS (1)
  1. DIMETHYL FUMARATE [Suspect]
     Active Substance: DIMETHYL FUMARATE
     Indication: Multiple sclerosis
     Dosage: 240MG BID ORAL
     Route: 048
     Dates: start: 20191210

REACTIONS (2)
  - Therapy interrupted [None]
  - Transurethral prostatectomy [None]

NARRATIVE: CASE EVENT DATE: 20230411
